FAERS Safety Report 21607958 (Version 2)
Quarter: 2023Q4

REPORT INFORMATION
  Report Type: Spontaneous
  Country: RO (occurrence: RO)
  Receive Date: 20221117
  Receipt Date: 20231124
  Transmission Date: 20240110
  Serious: Yes (Other)
  Sender: FDA-Public Use
  Company Number: RO-ORGANON-O2210ROM002336

PATIENT
  Age: 43 Year
  Sex: Female

DRUGS (1)
  1. DESOGESTREL\ETHINYL ESTRADIOL [Suspect]
     Active Substance: DESOGESTREL\ETHINYL ESTRADIOL
     Indication: Hormone replacement therapy
     Route: 048

REACTIONS (1)
  - Cerebral venous thrombosis [Unknown]
